FAERS Safety Report 21192144 (Version 2)
Quarter: 2022Q3

REPORT INFORMATION
  Report Type: Report from Study
  Country: US (occurrence: US)
  Receive Date: 20220809
  Receipt Date: 20220819
  Transmission Date: 20221026
  Serious: Yes (Other)
  Sender: FDA-Public Use
  Company Number: US-ALKERMES INC.-ALK-2022-003358

PATIENT
  Sex: Female

DRUGS (29)
  1. VIVITROL [Suspect]
     Active Substance: NALTREXONE
     Indication: Drug use disorder
     Dosage: 380 MILLIGRAM, QMO
     Route: 030
     Dates: start: 20220607
  2. BUPRENORPHINE [Suspect]
     Active Substance: BUPRENORPHINE
     Indication: Drug use disorder
     Dosage: 4 MILLIGRAM, QD
     Route: 048
     Dates: start: 20220603, end: 20220604
  3. NALTREXONE [Suspect]
     Active Substance: NALTREXONE
     Indication: Drug use disorder
     Dosage: 6 MILLIGRAM, ONE TIME DOSE
     Route: 048
     Dates: start: 20220607, end: 20220608
  4. NALTREXONE [Suspect]
     Active Substance: NALTREXONE
     Dosage: 1.5 MILLIGRAM, ONE TIME DOSE
     Route: 048
     Dates: start: 20220606, end: 20220606
  5. NALTREXONE [Suspect]
     Active Substance: NALTREXONE
     Dosage: LOW DOSE NALTREXONE TITRATION, ONE TIME DOSE
     Route: 048
     Dates: start: 20220603, end: 20220603
  6. CLONIDINE [Concomitant]
     Active Substance: CLONIDINE
     Indication: Drug use disorder
     Dosage: UNK MILLIGRAM, QD
     Route: 048
     Dates: start: 20220602, end: 20220613
  7. CLONIDINE [Concomitant]
     Active Substance: CLONIDINE
     Dosage: 0.2 MILLIGRAM, QD
     Route: 048
     Dates: start: 20220608, end: 20220608
  8. CLONIDINE [Concomitant]
     Active Substance: CLONIDINE
     Dosage: 0.4 MILLIGRAM, QD
     Route: 048
     Dates: start: 20220603, end: 20220607
  9. CLONAZEPAM [Concomitant]
     Active Substance: CLONAZEPAM
     Indication: Drug use disorder
     Dosage: UNK MILLIGRAM, QD
     Route: 048
     Dates: start: 20220602, end: 20220613
  10. CLONAZEPAM [Concomitant]
     Active Substance: CLONAZEPAM
     Dosage: 3 MILLIGRAM, QD
     Route: 048
     Dates: start: 20220606, end: 20220608
  11. CLONAZEPAM [Concomitant]
     Active Substance: CLONAZEPAM
     Dosage: 4 MILLIGRAM, QD
     Route: 048
     Dates: start: 20220605, end: 20220605
  12. CLONAZEPAM [Concomitant]
     Active Substance: CLONAZEPAM
     Dosage: 3 MILLIGRAM, QD
     Route: 048
     Dates: start: 20220604, end: 20220604
  13. CLONAZEPAM [Concomitant]
     Active Substance: CLONAZEPAM
     Dosage: 2 MILLIGRAM, QD
     Route: 048
     Dates: start: 20220603, end: 20220603
  14. CLONAZEPAM [Concomitant]
     Active Substance: CLONAZEPAM
     Dosage: UNK
  15. ZOLOFT [Concomitant]
     Active Substance: SERTRALINE HYDROCHLORIDE
     Indication: Depression
     Dosage: 50 MILLIGRAM
     Route: 065
  16. GABAPENTIN [Concomitant]
     Active Substance: GABAPENTIN
     Indication: Back pain
     Dosage: 300 MILLIGRAM
     Route: 065
  17. ABILIFY [Concomitant]
     Active Substance: ARIPIPRAZOLE
     Indication: Schizoaffective disorder
     Dosage: 5 MILLIGRAM
     Route: 065
  18. ZOFRAN [Concomitant]
     Active Substance: ONDANSETRON HYDROCHLORIDE
     Indication: Product used for unknown indication
     Dosage: UNK
     Route: 065
  19. TRAZODONE [Concomitant]
     Active Substance: TRAZODONE HYDROCHLORIDE
     Indication: Sleep disorder
     Dosage: 100 MILLIGRAM
     Route: 065
     Dates: start: 20220602
  20. THIAMINE [Concomitant]
     Active Substance: THIAMINE
     Indication: Product used for unknown indication
     Dosage: 100 MILLIGRAM
     Route: 065
     Dates: start: 20220602, end: 20220613
  21. THERAVIT ANTIOXIDANT [Concomitant]
     Indication: Product used for unknown indication
     Dosage: UNK
     Route: 065
     Dates: start: 20220602, end: 20220613
  22. FOLIC ACID [Concomitant]
     Active Substance: FOLIC ACID
     Indication: Product used for unknown indication
     Dosage: UNK
     Route: 065
     Dates: start: 20220602, end: 20220613
  23. PHENOBARBITAL [Concomitant]
     Active Substance: PHENOBARBITAL
     Indication: Product used for unknown indication
     Dosage: UNK
     Route: 065
     Dates: start: 20220602, end: 20220606
  24. CLARITHROMYCIN [Concomitant]
     Active Substance: CLARITHROMYCIN
     Indication: Product used for unknown indication
     Dosage: UNK
     Route: 065
     Dates: start: 20220602, end: 20220613
  25. DIAZEPAM [Concomitant]
     Active Substance: DIAZEPAM
     Indication: Product used for unknown indication
     Dosage: UNK
     Route: 065
  26. ONDANSETRON [Concomitant]
     Active Substance: ONDANSETRON
     Indication: Product used for unknown indication
     Dosage: UNK
     Route: 065
  27. BENTYL [Concomitant]
     Active Substance: DICYCLOMINE HYDROCHLORIDE
     Indication: Product used for unknown indication
     Dosage: UNK
     Route: 065
     Dates: start: 20220602, end: 20220613
  28. IMODIUM [Concomitant]
     Active Substance: LOPERAMIDE HYDROCHLORIDE
     Indication: Product used for unknown indication
     Dosage: UNK
     Route: 065
  29. DISULFIRAM [Concomitant]
     Active Substance: DISULFIRAM
     Indication: Product used for unknown indication
     Dosage: UNK
     Route: 065
     Dates: start: 20220622, end: 20220624

REACTIONS (2)
  - Abortion spontaneous [Recovered/Resolved]
  - Exposure during pregnancy [Recovered/Resolved]

NARRATIVE: CASE EVENT DATE: 20220101
